FAERS Safety Report 5814038-0 (Version None)
Quarter: 2008Q3

REPORT INFORMATION
  Report Type: 
  Country: None (occurrence: None)
  Receive Date: 20080717
  Receipt Date: 20080711
  Transmission Date: 20090109
  Serious: Yes (Hospitalization)
  Sender: FDA-Public Use
  Company Number: FI-BOEHRINGER INGELHEIM GMBH, GERMANY-2008-BP-11187RO

PATIENT

DRUGS (1)
  1. COCAINE [Suspect]

REACTIONS (1)
  - ELECTROCARDIOGRAM ABNORMAL [None]
